FAERS Safety Report 10793910 (Version 1)
Quarter: 2015Q1

REPORT INFORMATION
  Report Type: Report from Study
  Country: US (occurrence: US)
  Receive Date: 20150213
  Receipt Date: 20150213
  Transmission Date: 20150721
  Serious: Yes (Hospitalization)
  Sender: FDA-Public Use
  Company Number: US-TEVA-539889USA

PATIENT
  Age: 1 Year
  Sex: Female
  Weight: 9.4 kg

DRUGS (12)
  1. CYCLOPHOSPHAMIDE. [Suspect]
     Active Substance: CYCLOPHOSPHAMIDE
     Indication: ACUTE LYMPHOCYTIC LEUKAEMIA
     Dosage: LAST ADMINISTERED DATE 21-DEC-2014
     Route: 065
     Dates: start: 20141217, end: 20141221
  2. PEG-L-ASPARAGINASE [Suspect]
     Active Substance: PEGASPARGASE
     Dosage: LAST ADMINISTERED DATE 10-JAN-2015
     Route: 065
     Dates: start: 20150110, end: 20150110
  3. MERCAPTOPURINE. [Suspect]
     Active Substance: MERCAPTOPURINE
     Indication: ACUTE LYMPHOCYTIC LEUKAEMIA
     Dosage: LAST ADMINISTERED DATE 16-DEC-2014
     Route: 065
     Dates: start: 20141203, end: 20141216
  4. METHOTREXATE [Suspect]
     Active Substance: METHOTREXATE
     Dosage: LAST ADMINISTERED DATE 10-DEC-2014
     Route: 065
     Dates: start: 20141126
  5. DEXAMETHASONE. [Suspect]
     Active Substance: DEXAMETHASONE
     Indication: ACUTE LYMPHOCYTIC LEUKAEMIA
     Dosage: LAST ADMINISTERED DATE 30-NOV-2014
     Route: 065
     Dates: start: 20141126, end: 20141130
  6. ETOPOSIDE. [Suspect]
     Active Substance: ETOPOSIDE
     Indication: ACUTE LYMPHOCYTIC LEUKAEMIA
     Dosage: LAST ADMINISTERED DATE 21-DEC-2014
     Route: 065
     Dates: start: 20141217, end: 20141221
  7. METHOTREXATE [Suspect]
     Active Substance: METHOTREXATE
     Indication: ACUTE LYMPHOCYTIC LEUKAEMIA
     Dosage: LAST ADMINISTERED DATE 10-DEC-2014
     Route: 037
     Dates: start: 20141126, end: 20141126
  8. HYDROCORTISONE. [Suspect]
     Active Substance: HYDROCORTISONE
     Indication: ACUTE LYMPHOCYTIC LEUKAEMIA
     Dosage: LAST ADMINISTERED DATE 26-NOV-2014
     Route: 065
     Dates: start: 20141126, end: 20141126
  9. LESTAURTINIB [Suspect]
     Active Substance: LESTAURTINIB
     Indication: ACUTE LYMPHOCYTIC LEUKAEMIA
     Dosage: LAST ADMINISTERED DATE 15-JAN-2015
     Route: 065
     Dates: start: 20141127, end: 20150115
  10. CYTARABINE. [Suspect]
     Active Substance: CYTARABINE
     Indication: ACUTE LYMPHOCYTIC LEUKAEMIA
     Route: 037
     Dates: start: 20141126, end: 20141126
  11. VINCRISTINE [Suspect]
     Active Substance: VINCRISTINE
     Indication: ACUTE LYMPHOCYTIC LEUKAEMIA
     Dosage: LAST ADMINISTERED DATE 26-NOV-2014
     Route: 065
     Dates: start: 20141126, end: 20141126
  12. CYTARABINE. [Suspect]
     Active Substance: CYTARABINE
     Dosage: LAST DATE ADMINISTERED 09-JAN-2015
     Route: 065
     Dates: start: 20141126

REACTIONS (1)
  - Febrile neutropenia [Recovered/Resolved]

NARRATIVE: CASE EVENT DATE: 20150116
